FAERS Safety Report 24908839 (Version 1)
Quarter: 2025Q1

REPORT INFORMATION
  Report Type: Spontaneous
  Country: DE (occurrence: DE)
  Receive Date: 20250131
  Receipt Date: 20250131
  Transmission Date: 20250408
  Serious: Yes (Other)
  Sender: DR REDDYS
  Company Number: DE-GERMAN-DEU/2025/01/001274

PATIENT
  Age: 31 Year
  Sex: Female

DRUGS (12)
  1. LAMOTRIGINE [Suspect]
     Active Substance: LAMOTRIGINE
     Indication: Epilepsy
  2. LEVETIRACETAM [Suspect]
     Active Substance: LEVETIRACETAM
     Indication: Epilepsy
  3. ZONISAMIDE [Suspect]
     Active Substance: ZONISAMIDE
     Indication: Occipital lobe epilepsy
  4. VALPROATE [Suspect]
     Active Substance: VALPROIC ACID
     Indication: Occipital lobe epilepsy
  5. GABAPENTIN [Suspect]
     Active Substance: GABAPENTIN
     Indication: Occipital lobe epilepsy
  6. FOLIC ACID [Suspect]
     Active Substance: FOLIC ACID
     Indication: Occipital lobe epilepsy
  7. FOLIC ACID [Suspect]
     Active Substance: FOLIC ACID
  8. CARBAMAZEPINE [Suspect]
     Active Substance: CARBAMAZEPINE
     Indication: Occipital lobe epilepsy
  9. TOPIRAMATE [Suspect]
     Active Substance: TOPIRAMATE
     Indication: Occipital lobe epilepsy
  10. OXCARBAZEPINE [Suspect]
     Active Substance: OXCARBAZEPINE
     Indication: Occipital lobe epilepsy
  11. PERAMPANEL [Suspect]
     Active Substance: PERAMPANEL
     Indication: Occipital lobe epilepsy
  12. BRIVARACETAM [Suspect]
     Active Substance: BRIVARACETAM
     Indication: Occipital lobe epilepsy

REACTIONS (3)
  - Drug ineffective [Unknown]
  - Adverse drug reaction [Unknown]
  - Drug intolerance [Unknown]
